FAERS Safety Report 11609200 (Version 3)
Quarter: 2015Q4

REPORT INFORMATION
  Report Type: Report from Study
  Country: NL (occurrence: NL)
  Receive Date: 20151007
  Receipt Date: 20151117
  Transmission Date: 20160304
  Serious: Yes (Hospitalization)
  Sender: FDA-Public Use
  Company Number: NL-ABBVIE-15P-114-1441004-00

PATIENT
  Age: 74 Year
  Sex: Male
  Weight: 56 kg

DRUGS (6)
  1. DUODOPA [Suspect]
     Active Substance: CARBIDOPA\LEVODOPA
     Dosage: MD: 5.7; CD: 6.7; ED: 3.0; NIGHT DOSE: 5.5.
     Route: 050
  2. DUODOPA [Suspect]
     Active Substance: CARBIDOPA\LEVODOPA
     Dosage: MORNING DOSE: 6.5 CONTINUOS DOSE: 6.8 EXTRA DOSE: 4.5
     Route: 050
  3. DUODOPA [Suspect]
     Active Substance: CARBIDOPA\LEVODOPA
     Dosage: MD:7.5, CD: 7.4, ED: 4.0, ND: 6.5
     Route: 050
  4. DUODOPA [Suspect]
     Active Substance: CARBIDOPA\LEVODOPA
     Dosage: MORNING DOSE: 6.5 CONTINUOS DOSE: 7 EXTRA DOSE: 3
     Route: 050
  5. SYMMETREL [Concomitant]
     Active Substance: AMANTADINE HYDROCHLORIDE
     Indication: PRODUCT USED FOR UNKNOWN INDICATION
  6. DUODOPA [Suspect]
     Active Substance: CARBIDOPA\LEVODOPA
     Indication: PARKINSON^S DISEASE
     Dosage: MD: 5.7; CD: 6.7; ED: 3.0; NIGHT DOSE: 6.5.
     Route: 050
     Dates: start: 20081210

REACTIONS (36)
  - Device dislocation [Recovered/Resolved]
  - Restlessness [Recovering/Resolving]
  - Tremor [Recovering/Resolving]
  - Fall [Recovered/Resolved]
  - Dyskinesia [Recovered/Resolved]
  - Apathy [Not Recovered/Not Resolved]
  - Cognitive disorder [Not Recovered/Not Resolved]
  - Feeling abnormal [Not Recovered/Not Resolved]
  - Muscle rigidity [Not Recovered/Not Resolved]
  - Fatigue [Not Recovered/Not Resolved]
  - Blood sodium decreased [Not Recovered/Not Resolved]
  - Unevaluable event [Not Recovered/Not Resolved]
  - Therapy change [Not Recovered/Not Resolved]
  - Fluid imbalance [Not Recovered/Not Resolved]
  - Post procedural diarrhoea [Not Recovered/Not Resolved]
  - Device dislocation [Recovered/Resolved]
  - On and off phenomenon [Not Recovered/Not Resolved]
  - Device issue [Recovered/Resolved]
  - Device connection issue [Unknown]
  - Malaise [Not Recovered/Not Resolved]
  - Laceration [Recovering/Resolving]
  - Gait disturbance [Recovering/Resolving]
  - Tremor [Recovered/Resolved]
  - Fall [Recovered/Resolved]
  - On and off phenomenon [Recovering/Resolving]
  - Fatigue [Not Recovered/Not Resolved]
  - Apathy [Recovered/Resolved]
  - Parkinson^s disease [Recovered/Resolved]
  - Mobility decreased [Recovering/Resolving]
  - Hyperkinesia [Recovered/Resolved]
  - Eating disorder [Recovered/Resolved]
  - Parkinson^s disease [Recovering/Resolving]
  - Stoma site discharge [Not Recovered/Not Resolved]
  - Weight decreased [Not Recovered/Not Resolved]
  - Tremor [Not Recovered/Not Resolved]
  - Tremor [Not Recovered/Not Resolved]

NARRATIVE: CASE EVENT DATE: 201505
